FAERS Safety Report 10024024 (Version 1)
Quarter: 2014Q1

REPORT INFORMATION
  Report Type: Spontaneous
  Country: US (occurrence: US)
  Receive Date: 20140320
  Receipt Date: 20140320
  Transmission Date: 20141002
  Serious: No
  Sender: FDA-Public Use
  Company Number: US-BAYER-2014-041116

PATIENT
  Age: 55 Year
  Sex: Male
  Weight: 63.49 kg

DRUGS (1)
  1. ALEVE CAPLET [Suspect]
     Indication: BACK PAIN
     Dosage: 2 DF, QD
     Route: 048
     Dates: start: 2013

REACTIONS (1)
  - Gastric disorder [Not Recovered/Not Resolved]
